FAERS Safety Report 24144671 (Version 1)
Quarter: 2024Q3

REPORT INFORMATION
  Report Type: Report from Study
  Country: US (occurrence: US)
  Receive Date: 20240728
  Receipt Date: 20240728
  Transmission Date: 20241017
  Serious: Yes (Other)
  Sender: ABBVIE
  Company Number: US-ABBVIE-5852383

PATIENT
  Age: 60 Year
  Sex: Male

DRUGS (4)
  1. SKYRIZI [Suspect]
     Active Substance: RISANKIZUMAB-RZAA
     Indication: Crohn^s disease
     Dosage: SKYRIZI CARTRIDGE?STRENGTH: 360MG/2.4M?INJECT 360MG UNDER THE SKIN USING THE ON-BODY INJECTOR EVE...
     Route: 058
     Dates: start: 202307
  2. SKYRIZI [Suspect]
     Active Substance: RISANKIZUMAB-RZAA
     Indication: Crohn^s disease
     Dosage: TITRATION DOSING: SKYRIZI 600 MG/10ML IV INFUSION AT WEEK 0
     Route: 058
     Dates: start: 202304, end: 202304
  3. SKYRIZI [Suspect]
     Active Substance: RISANKIZUMAB-RZAA
     Indication: Crohn^s disease
     Dosage: TITRATION DOSING: SKYRIZI 600 MG/10ML IV INFUSION AT  WEEK 4
     Route: 058
     Dates: start: 202305, end: 202305
  4. SKYRIZI [Suspect]
     Active Substance: RISANKIZUMAB-RZAA
     Indication: Crohn^s disease
     Dosage: TITRATION DOSING: SKYRIZI 600 MG/10ML IV INFUSION AT  WEEK 8
     Route: 058
     Dates: start: 20230621, end: 20230621

REACTIONS (5)
  - Ileostomy [Unknown]
  - Insomnia [Unknown]
  - Diarrhoea [Unknown]
  - Haematochezia [Unknown]
  - Faeces soft [Unknown]

NARRATIVE: CASE EVENT DATE: 20240701
